FAERS Safety Report 8681710 (Version 3)
Quarter: 2013Q3

REPORT INFORMATION
  Report Type: Spontaneous
  Country: US (occurrence: US)
  Receive Date: 20120725
  Receipt Date: 20130904
  Transmission Date: 20140515
  Serious: Yes (Hospitalization, Disabling, Other)
  Sender: FDA-Public Use
  Company Number: US-009507513-1207USA004200

PATIENT
  Sex: Female
  Weight: 79.37 kg

DRUGS (9)
  1. FOSAMAX [Suspect]
     Indication: OSTEOPENIA
     Dosage: 70 MG, UNK
     Route: 048
     Dates: start: 20030817, end: 20070330
  2. FOSAMAX [Suspect]
     Indication: OSTEOPOROSIS
     Route: 048
  3. FOSAMAX PLUS D [Suspect]
     Indication: OSTEOPENIA
     Dosage: 70 MG/2800IU, UNK
     Route: 048
     Dates: start: 20070430, end: 20090127
  4. ALENDRONATE SODIUM [Suspect]
     Indication: OSTEOPENIA
     Dosage: 70 MG, UNK
     Route: 048
     Dates: start: 20090227, end: 20100719
  5. OMEGA-3 [Concomitant]
     Dosage: 1000 MG, QD
     Dates: start: 2002
  6. FOLIC ACID [Concomitant]
     Dosage: 400 MG, QD
     Dates: start: 2002
  7. NEXIUM [Concomitant]
     Dosage: UNK
     Dates: start: 20020531
  8. CALCIUM (UNSPECIFIED) [Concomitant]
     Dosage: 1200 MG, QD
     Dates: start: 2003, end: 20100917
  9. VITAMIN D (UNSPECIFIED) [Concomitant]
     Dosage: 50000 IU, QD
     Dates: start: 2008

REACTIONS (15)
  - Femur fracture [Not Recovered/Not Resolved]
  - Intramedullary rod insertion [Unknown]
  - Femur fracture [Unknown]
  - Vitamin D deficiency [Unknown]
  - Heart rate abnormal [Unknown]
  - Low turnover osteopathy [Unknown]
  - Coronary arterial stent insertion [Unknown]
  - Chest pain [Unknown]
  - Dyspnoea [Unknown]
  - Coronary artery disease [Unknown]
  - Fibroma [Unknown]
  - Vascular calcification [Unknown]
  - Haemoglobin decreased [Recovered/Resolved]
  - Nausea [Unknown]
  - Abdominal discomfort [Unknown]
